FAERS Safety Report 8845035 (Version 1)
Quarter: 2012Q4

REPORT INFORMATION
  Report Type: 
  Country: FR (occurrence: FR)
  Receive Date: 20121017
  Receipt Date: 20121017
  Transmission Date: 20130627
  Serious: Yes (Hospitalization, Other)
  Sender: FDA-Public Use
  Company Number: FR-ELI_LILLY_AND_COMPANY-FR201208001862

PATIENT
  Age: 81 Year
  Sex: Male
  Weight: 86 kg

DRUGS (10)
  1. ALIMTA [Suspect]
     Indication: PLEURAL MESOTHELIOMA
     Dosage: 996 mg, UNK
     Route: 042
     Dates: start: 20120622, end: 20120720
  2. ALIMTA [Suspect]
     Dosage: 747 mg, UNK
     Dates: start: 20120720
  3. PREVISCAN [Concomitant]
     Indication: ARRHYTHMIA
  4. LASILIX [Concomitant]
     Indication: HYPERTENSION
  5. CARDENSIEL [Concomitant]
     Indication: HYPERTENSION
  6. VITAMIN B12 [Concomitant]
     Indication: PREMEDICATION
  7. TAHOR [Concomitant]
  8. STAGID [Concomitant]
  9. NISIS [Concomitant]
  10. SPECIAFOLDINE [Concomitant]

REACTIONS (11)
  - Cellulitis [Recovering/Resolving]
  - Thrombocytopenia [Recovering/Resolving]
  - Leukopenia [Recovering/Resolving]
  - Anaemia [Unknown]
  - Hepatocellular injury [Recovering/Resolving]
  - Renal failure [Unknown]
  - Asthenia [Unknown]
  - Dehydration [Unknown]
  - Blood culture [Unknown]
  - Dermatitis bullous [Unknown]
  - Dermatitis exfoliative [Unknown]
